FAERS Safety Report 8383459-7 (Version None)
Quarter: 2012Q2

REPORT INFORMATION
  Report Type: 
  Country: None (occurrence: None)
  Receive Date: 20120524
  Receipt Date: 20120523
  Transmission Date: 20120825
  Serious: Yes (Hospitalization)
  Sender: FDA-Public Use
  Company Number: PHHO2011US13311

PATIENT
  Sex: Female
  Weight: 72 kg

DRUGS (13)
  1. DULCOLAX [Concomitant]
  2. CEPHALEXIN [Concomitant]
     Indication: URINARY TRACT INFECTION
  3. INTERFERON BETA-1A [Suspect]
     Indication: MULTIPLE SCLEROSIS
  4. TYLENOL [Concomitant]
     Dosage: UNK
  5. COLACE [Concomitant]
  6. KEFLEX [Concomitant]
  7. GILENYA [Suspect]
     Indication: MULTIPLE SCLEROSIS
     Dosage: 5 MG, QD
     Route: 048
     Dates: start: 20110620, end: 20110625
  8. LOTREL [Concomitant]
  9. MILK OF MAGNESIA TAB [Concomitant]
  10. ZOFRAN [Concomitant]
  11. TOPROL-XL [Concomitant]
  12. DETROL [Concomitant]
  13. SENOKOT [Concomitant]

REACTIONS (3)
  - ANXIETY [None]
  - DYSPNOEA [None]
  - PALPITATIONS [None]
